FAERS Safety Report 10156399 (Version 1)
Quarter: 2014Q2

REPORT INFORMATION
  Report Type: Spontaneous
  Country: US (occurrence: US)
  Receive Date: 20140507
  Receipt Date: 20140507
  Transmission Date: 20141212
  Serious: Yes (Death)
  Sender: FDA-Public Use
  Company Number: US-RANBAXY-2014US-80791

PATIENT
  Age: 29 Year
  Sex: Male

DRUGS (1)
  1. MORPHINE [Suspect]
     Indication: PAIN MANAGEMENT
     Dosage: UNK
     Route: 065

REACTIONS (1)
  - Sudden death [Fatal]
